FAERS Safety Report 10440427 (Version 2)
Quarter: 2014Q4

REPORT INFORMATION
  Report Type: Spontaneous
  Country: BR (occurrence: BR)
  Receive Date: 20140909
  Receipt Date: 20141113
  Transmission Date: 20150528
  Serious: Yes (Hospitalization)
  Sender: FDA-Public Use
  Company Number: BR-ASTRAZENECA-2014SE66836

PATIENT
  Age: 63 Year
  Sex: Male
  Weight: 85 kg

DRUGS (9)
  1. FLUOXETINE [Concomitant]
     Active Substance: FLUOXETINE\FLUOXETINE HYDROCHLORIDE
     Route: 048
  2. ASA [Concomitant]
     Active Substance: ASPIRIN
     Route: 048
     Dates: end: 201401
  3. ISOSORBIDE MONONITRATE. [Concomitant]
     Active Substance: ISOSORBIDE MONONITRATE
     Indication: ARRHYTHMIA
     Route: 048
  4. BRILINTA [Suspect]
     Active Substance: TICAGRELOR
     Indication: VENOUS OCCLUSION
     Route: 048
     Dates: start: 201310, end: 201401
  5. HYDROCHLOROTHIAZIDE (NON-AZ PRODUCT) [Suspect]
     Active Substance: HYDROCHLOROTHIAZIDE
     Indication: HYPERTENSION
     Route: 048
     Dates: start: 2013
  6. ATACAND [Suspect]
     Active Substance: CANDESARTAN CILEXETIL
     Route: 048
     Dates: start: 2005
  7. ATENOLOL. [Suspect]
     Active Substance: ATENOLOL
     Route: 048
     Dates: start: 2005
  8. ASA [Concomitant]
     Active Substance: ASPIRIN
     Route: 048
     Dates: end: 201401
  9. ATORVASTATIN [Concomitant]
     Active Substance: ATORVASTATIN
     Route: 048

REACTIONS (5)
  - Dizziness [Recovered/Resolved]
  - Asthenia [Recovered/Resolved]
  - Cardiomyopathy [Not Recovered/Not Resolved]
  - Vascular occlusion [Recovered/Resolved]
  - Vascular bypass dysfunction [Recovered/Resolved]

NARRATIVE: CASE EVENT DATE: 2005
